FAERS Safety Report 6051712-8 (Version None)
Quarter: 2009Q1

REPORT INFORMATION
  Report Type: 
  Country: None (occurrence: None)
  Receive Date: 20090126
  Receipt Date: 20090113
  Transmission Date: 20090719
  Serious: Yes (Other)
  Sender: FDA-Public Use
  Company Number: US-ROCHE-603713

PATIENT
  Sex: Male
  Weight: 84.8 kg

DRUGS (2)
  1. PEGASYS [Suspect]
     Indication: HEPATITIS C
     Dosage: FORM: PRE FILLED SYRINGE
     Route: 058
     Dates: start: 20081103, end: 20081210
  2. COPEGUS [Suspect]
     Indication: HEPATITIS C
     Route: 048
     Dates: start: 20081103, end: 20081210

REACTIONS (2)
  - COAGULOPATHY [None]
  - THROMBOCYTOPENIA [None]
